FAERS Safety Report 7097502-9 (Version None)
Quarter: 2010Q4

REPORT INFORMATION
  Report Type: 
  Country: None (occurrence: None)
  Receive Date: 20101111
  Receipt Date: 20101028
  Transmission Date: 20110411
  Serious: Yes (Other)
  Sender: FDA-Public Use
  Company Number: PHHO2010GB16914

PATIENT
  Sex: Male

DRUGS (10)
  1. ZOLEDRONATE T29581+SOLINJ+BM [Suspect]
     Dosage: 4MG
     Route: 042
  2. HORMONES [Concomitant]
  3. BISPHOSPHONATES [Concomitant]
  4. ATENOLOL [Concomitant]
  5. AMLODIPINE [Concomitant]
  6. ZYLORIC [Concomitant]
  7. ASPIRIN [Concomitant]
  8. QUININE SULFATE [Concomitant]
  9. PARACETAMOL [Concomitant]
  10. ZOLADEX [Concomitant]

REACTIONS (7)
  - DEBRIDEMENT [None]
  - INFECTION [None]
  - NECROSIS [None]
  - OSTEONECROSIS OF JAW [None]
  - PAIN [None]
  - THERAPEUTIC PROCEDURE [None]
  - TOOTH EXTRACTION [None]
